FAERS Safety Report 16221477 (Version 1)
Quarter: 2019Q2

REPORT INFORMATION
  Report Type: Spontaneous
  Country: US (occurrence: US)
  Receive Date: 20190422
  Receipt Date: 20190422
  Transmission Date: 20190711
  Serious: Yes (Other)
  Sender: FDA-Public Use
  Company Number: US-SA-2019SA102265

PATIENT

DRUGS (11)
  1. METHOTREXATE. [Suspect]
     Active Substance: METHOTREXATE
     Indication: RHEUMATOID ARTHRITIS
  2. ARAVA [Suspect]
     Active Substance: LEFLUNOMIDE
     Indication: RHEUMATOID ARTHRITIS
  3. SULFASALAZINE. [Suspect]
     Active Substance: SULFASALAZINE
     Indication: RHEUMATOID ARTHRITIS
  4. ENBREL [Suspect]
     Active Substance: ETANERCEPT
     Indication: RHEUMATOID ARTHRITIS
  5. HUMIRA [Suspect]
     Active Substance: ADALIMUMAB
     Indication: RHEUMATOID ARTHRITIS
     Route: 058
  6. HYDROXYCHLOROQUINE SULFATE. [Suspect]
     Active Substance: HYDROXYCHLOROQUINE SULFATE
     Indication: RHEUMATOID ARTHRITIS
  7. ORENCIA [Suspect]
     Active Substance: ABATACEPT
     Indication: RHEUMATOID ARTHRITIS
  8. BENZYLPENICILLIN [Suspect]
     Active Substance: PENICILLIN G
     Indication: RHEUMATOID ARTHRITIS
  9. BUDESONIDE. [Suspect]
     Active Substance: BUDESONIDE
     Indication: RHEUMATOID ARTHRITIS
  10. GENTAMICIN SULFATE. [Suspect]
     Active Substance: GENTAMICIN SULFATE
     Indication: RHEUMATOID ARTHRITIS
  11. SULFANILAMIDE [Suspect]
     Active Substance: SULFANILAMIDE
     Indication: RHEUMATOID ARTHRITIS

REACTIONS (6)
  - Migraine [Unknown]
  - Therapeutic product effect decreased [Unknown]
  - Liver function test increased [Unknown]
  - Meningitis [Unknown]
  - Drug hypersensitivity [Unknown]
  - Drug ineffective [Unknown]
